FAERS Safety Report 23923155 (Version 1)
Quarter: 2024Q2

REPORT INFORMATION
  Report Type: Spontaneous
  Country: CH (occurrence: CH)
  Receive Date: 20240531
  Receipt Date: 20240531
  Transmission Date: 20240716
  Serious: Yes (Hospitalization, Other)
  Sender: FDA-Public Use
  Company Number: None

PATIENT
  Age: 49 Year
  Sex: Female
  Weight: 76 kg

DRUGS (5)
  1. EUTHYROX [Suspect]
     Active Substance: LEVOTHYROXINE SODIUM
     Indication: Product used for unknown indication
     Dosage: 2500 MCG ONCE ; TOTALLY
     Route: 048
     Dates: start: 20240330
  2. FLUOXETINE [Suspect]
     Active Substance: FLUOXETINE HYDROCHLORIDE
     Indication: Product used for unknown indication
     Dosage: 400 MG EINMALIG ; IN TOTAL
     Route: 048
     Dates: start: 20240330, end: 20240330
  3. QUETIAPINE [Suspect]
     Active Substance: QUETIAPINE
     Indication: Product used for unknown indication
     Dosage: 9.5G ONE TIME ; TOTALLY
     Route: 048
     Dates: start: 20240330, end: 20240330
  4. ZOLPIDEM [Suspect]
     Active Substance: ZOLPIDEM TARTRATE
     Indication: Product used for unknown indication
     Dosage: 360 MG EINMALIG ; IN TOTAL
     Route: 048
     Dates: start: 20240330
  5. PRAMIPEXOLE [Suspect]
     Active Substance: PRAMIPEXOLE\PRAMIPEXOLE DIHYDROCHLORIDE
     Indication: Product used for unknown indication
     Dosage: 7.5G ONE TIME ; TOTALLY
     Route: 048
     Dates: start: 20240330

REACTIONS (3)
  - Poisoning [Recovering/Resolving]
  - Liver disorder [Recovering/Resolving]
  - Disturbance in attention [Unknown]

NARRATIVE: CASE EVENT DATE: 20240330
